FAERS Safety Report 15375319 (Version 1)
Quarter: 2018Q4

REPORT INFORMATION
  Report Type: Report from Study
  Country: US (occurrence: US)
  Receive Date: 20180912
  Receipt Date: 20180912
  Transmission Date: 20190204
  Serious: No
  Sender: FDA-Public Use
  Company Number: US-SA-2018SA222686

PATIENT
  Sex: Female

DRUGS (14)
  1. RESTASIS [Concomitant]
     Active Substance: CYCLOSPORINE
     Indication: CATARACT OPERATION
     Dosage: 4 UNK, QD
     Route: 031
     Dates: start: 201711
  2. ASPIRIN. [Concomitant]
     Active Substance: ASPIRIN
     Indication: PROPHYLAXIS
     Dosage: 81 MG, QD
     Route: 048
     Dates: start: 2017
  3. BLINDED SOTAGLIFLOZIN [Suspect]
     Active Substance: SOTAGLIFLOZIN
     Indication: TYPE 2 DIABETES MELLITUS
     Dosage: 2 UNK, QD
     Route: 048
     Dates: start: 20180806, end: 20180813
  4. PROZAC [Concomitant]
     Active Substance: FLUOXETINE HYDROCHLORIDE
     Indication: ANXIETY
     Dosage: 10 MG, QD
     Route: 048
     Dates: start: 2006
  5. TOPROL XL [Concomitant]
     Active Substance: METOPROLOL SUCCINATE
     Indication: HYPERTENSION
     Dosage: 25 MG, QD
     Route: 048
     Dates: start: 1998
  6. PRED FORTE [Concomitant]
     Active Substance: PREDNISOLONE ACETATE
     Indication: CATARACT OPERATION
     Dosage: 6 OTHER, QD
     Route: 031
     Dates: start: 201711
  7. BLINDED NO STUDY DRUG GIVEN [Suspect]
     Active Substance: INVESTIGATIONAL PRODUCT
     Indication: TYPE 2 DIABETES MELLITUS
     Dosage: 2 UNK, QD
     Route: 048
     Dates: start: 20180806, end: 20180813
  8. BLINDED PLACEBO [Suspect]
     Active Substance: INVESTIGATIONAL PRODUCT
     Indication: TYPE 2 DIABETES MELLITUS
     Dosage: 2 UNK, QD
     Route: 048
     Dates: start: 20180806, end: 20180813
  9. NORVASC [Concomitant]
     Active Substance: AMLODIPINE BESYLATE
     Indication: HYPERTENSION
     Dosage: 5 MG, QD
     Route: 048
     Dates: start: 1998
  10. COSOPT [Concomitant]
     Active Substance: DORZOLAMIDE HYDROCHLORIDE\TIMOLOL MALEATE
     Indication: CATARACT OPERATION
     Dosage: 2 UNK
     Route: 031
     Dates: start: 201711
  11. MEVACOR [Concomitant]
     Active Substance: LOVASTATIN
     Indication: DYSLIPIDAEMIA
     Dosage: 80 MG, QD
     Route: 048
     Dates: start: 1998
  12. PRILOSEC [Concomitant]
     Active Substance: OMEPRAZOLE MAGNESIUM
     Indication: GASTROOESOPHAGEAL REFLUX DISEASE
     Dosage: 20 MG, QD
     Route: 048
     Dates: start: 2013
  13. BLINDED SOTAGLIFLOZIN [Suspect]
     Active Substance: SOTAGLIFLOZIN
     Indication: TYPE 2 DIABETES MELLITUS
     Dosage: 2 UNK, QD
     Route: 048
     Dates: start: 20180806, end: 20180813
  14. AMARYL [Suspect]
     Active Substance: GLIMEPIRIDE
     Indication: TYPE 2 DIABETES MELLITUS
     Dosage: 1 MG, QD
     Route: 048
     Dates: start: 201707

REACTIONS (1)
  - Alanine aminotransferase increased [Not Recovered/Not Resolved]

NARRATIVE: CASE EVENT DATE: 20180806
